FAERS Safety Report 8050719-9 (Version None)
Quarter: 2012Q1

REPORT INFORMATION
  Report Type: 
  Country: None (occurrence: None)
  Receive Date: 20120117
  Receipt Date: 20120117
  Transmission Date: 20120608
  Serious: Yes (Hospitalization, Other)
  Sender: FDA-Public Use
  Company Number: None

PATIENT
  Age: 9 Year
  Sex: Male
  Weight: 33.565 kg

DRUGS (2)
  1. PROZAC [Suspect]
     Indication: DEPRESSION
     Dosage: 1/2  TEASPOON
     Route: 048
     Dates: start: 20090830, end: 20110315
  2. CONCERTA [Concomitant]
     Indication: ATTENTION DEFICIT/HYPERACTIVITY DISORDER
     Dosage: 1 TABLET
     Route: 048
     Dates: start: 20110210, end: 20120115

REACTIONS (9)
  - DISTURBANCE IN ATTENTION [None]
  - LETHARGY [None]
  - SYNCOPE [None]
  - DELUSION [None]
  - IRRITABILITY [None]
  - HALLUCINATION [None]
  - PSYCHOMOTOR HYPERACTIVITY [None]
  - PHYSICAL ASSAULT [None]
  - AGGRESSION [None]
